FAERS Safety Report 18175509 (Version 1)
Quarter: 2020Q3

REPORT INFORMATION
  Report Type: Spontaneous
  Country: DE (occurrence: DE)
  Receive Date: 20200820
  Receipt Date: 20200820
  Transmission Date: 20201103
  Serious: Yes (Hospitalization)
  Sender: FDA-Public Use
  Company Number: DE-NOVOPROD-745780

PATIENT
  Age: 12 Year
  Sex: Female
  Weight: 52 kg

DRUGS (1)
  1. NOVORAPID [Suspect]
     Active Substance: INSULIN ASPART
     Indication: TYPE 1 DIABETES MELLITUS
     Dosage: UNK
     Route: 058

REACTIONS (5)
  - Hyperglycaemia [Unknown]
  - Device use error [Unknown]
  - Polyuria [Unknown]
  - Ketoacidosis [Unknown]
  - Nausea [Unknown]

NARRATIVE: CASE EVENT DATE: 20190618
